FAERS Safety Report 8839531 (Version 3)
Quarter: 2012Q4

REPORT INFORMATION
  Report Type: 
  Country: JP (occurrence: JP)
  Receive Date: 20121015
  Receipt Date: 20121231
  Transmission Date: 20130627
  Serious: Yes (Death, Hospitalization, Other)
  Sender: FDA-Public Use
  Company Number: PHHY2012JP090465

PATIENT
  Age: 75 Year
  Sex: Male
  Weight: 62 kg

DRUGS (4)
  1. TEGRETOL [Suspect]
     Indication: TRIGEMINAL NEURALGIA
     Dosage: 2 DF, daily
     Route: 048
     Dates: start: 20111202, end: 20120123
  2. ATELEC [Concomitant]
     Dosage: 20 mg, UNK
     Route: 048
  3. NATRIX [Concomitant]
     Dosage: 2 mg, UNK
     Route: 048
  4. IRBETAN [Concomitant]
     Dosage: 100 mg, UNK
     Route: 048

REACTIONS (8)
  - Renal failure acute [Fatal]
  - Infection [Fatal]
  - Myocardial infarction [Fatal]
  - Drug reaction with eosinophilia and systemic symptoms [Fatal]
  - Rash [Fatal]
  - Pyrexia [Fatal]
  - Lymphadenopathy [Fatal]
  - Dehydration [Fatal]
